FAERS Safety Report 4446934-3 (Version None)
Quarter: 2004Q3

REPORT INFORMATION
  Report Type: 
  Country: None (occurrence: None)
  Receive Date: 20040908
  Receipt Date: 20040824
  Transmission Date: 20050211
  Serious: Yes (Hospitalization)
  Sender: FDA-Public Use
  Company Number: 2004-BP-07051CL

PATIENT
  Age: 68 Year
  Sex: Male

DRUGS (1)
  1. MICARDIS HCT [Suspect]
     Indication: HYPERTENSION
     Dosage: SEE TEXT (SEE TEXT, 1 TAB/DAILY (STRENGTH: 80/12.5 MG)) PO
     Route: 048
     Dates: start: 20040216

REACTIONS (1)
  - UPPER GASTROINTESTINAL HAEMORRHAGE [None]
